FAERS Safety Report 8672692 (Version 2)
Quarter: 2013Q4

REPORT INFORMATION
  Report Type: Spontaneous
  Country: GB (occurrence: GB)
  Receive Date: 20120719
  Receipt Date: 20131009
  Transmission Date: 20140711
  Serious: Yes (Other)
  Sender: FDA-Public Use
  Company Number: GB-009507513-1207GBR003626

PATIENT
  Age: 79 Year
  Sex: Female
  Weight: 48.5 kg

DRUGS (8)
  1. EZETROL [Suspect]
     Indication: HYPERCHOLESTEROLAEMIA
     Dosage: 10 MG, UNK
     Route: 048
     Dates: start: 20110613, end: 20110901
  2. ATENOLOL [Concomitant]
     Indication: HYPERTENSION
     Dosage: 50 MG, QD
     Route: 048
     Dates: start: 20040227
  3. LERCANIDIPINE [Concomitant]
     Indication: HYPERTENSION
     Dosage: 10 MG, QD
     Route: 048
     Dates: start: 20060127
  4. NAPROXEN [Concomitant]
     Indication: ARTHRITIS
     Dosage: 50 MG, BID
     Route: 048
     Dates: start: 20081204
  5. RAMIPRIL [Concomitant]
     Indication: RENAL FAILURE CHRONIC
     Dosage: 2.5 MG, QD
     Route: 048
     Dates: start: 20041026
  6. RAMIPRIL [Concomitant]
     Indication: DIABETES MELLITUS
  7. RAMIPRIL [Concomitant]
     Indication: HYPERTENSION
  8. RANITIDINE [Concomitant]
     Indication: HYPERCHLORHYDRIA
     Dosage: 150 MG, BID
     Route: 048
     Dates: start: 20041026

REACTIONS (1)
  - Alopecia totalis [Not Recovered/Not Resolved]
